FAERS Safety Report 18823560 (Version 1)
Quarter: 2021Q1

REPORT INFORMATION
  Report Type: Spontaneous
  Country: US (occurrence: US)
  Receive Date: 20210202
  Receipt Date: 20210202
  Transmission Date: 20210419
  Serious: Yes (Other)
  Sender: FDA-Public Use
  Company Number: US-MYLANLABS-2021M1006056

PATIENT

DRUGS (2)
  1. DIMETHYL FUMARATE DELAYED?RELEASE CAPSULES [Suspect]
     Active Substance: DIMETHYL FUMARATE
     Dosage: UNK
  2. DIMETHYL FUMARATE DELAYED?RELEASE CAPSULES [Suspect]
     Active Substance: DIMETHYL FUMARATE
     Indication: MULTIPLE SCLEROSIS
     Dosage: UNK
     Route: 065

REACTIONS (1)
  - Hallucination [Unknown]

NARRATIVE: CASE EVENT DATE: 20201013
